FAERS Safety Report 15889432 (Version 1)
Quarter: 2019Q1

REPORT INFORMATION
  Report Type: Spontaneous
  Country: US (occurrence: US)
  Receive Date: 20190109
  Receipt Date: 20190109
  Transmission Date: 20190417
  Serious: Yes (Hospitalization)
  Sender: FDA-Public Use
  Company Number: None

PATIENT
  Age: 32 Year
  Sex: Male
  Weight: 69.4 kg

DRUGS (10)
  1. CLONAZEPAM. [Concomitant]
     Active Substance: CLONAZEPAM
  2. DEXTROAMPHETAMINE. [Concomitant]
     Active Substance: DEXTROAMPHETAMINE
  3. ZALEPLON. [Concomitant]
     Active Substance: ZALEPLON
  4. NALOXONE [Concomitant]
     Active Substance: NALOXONE
  5. TUMS [Concomitant]
     Active Substance: CALCIUM CARBONATE
  6. GABAPENTIN. [Concomitant]
     Active Substance: GABAPENTIN
  7. HARVONI [Suspect]
     Active Substance: LEDIPASVIR\SOFOSBUVIR
     Indication: HEPATITIS C
     Route: 048
     Dates: start: 20170921, end: 20171213
  8. LORATADINE. [Concomitant]
     Active Substance: LORATADINE
  9. TAMSULOSIN [Concomitant]
     Active Substance: TAMSULOSIN
  10. METHADONE [Concomitant]
     Active Substance: METHADONE HYDROCHLORIDE

REACTIONS (1)
  - Substance abuse [None]

NARRATIVE: CASE EVENT DATE: 20171110
